FAERS Safety Report 4505146-5 (Version None)
Quarter: 2004Q4

REPORT INFORMATION
  Report Type: 
  Country: None (occurrence: None)
  Receive Date: 20041117
  Receipt Date: 20041117
  Transmission Date: 20050328
  Serious: Yes (Hospitalization)
  Sender: FDA-Public Use
  Company Number: None

PATIENT
  Age: 63 Year
  Sex: Male

DRUGS (9)
  1. WARFARIN [Suspect]
     Indication: DEEP VEIN THROMBOSIS
     Dosage: 7.5 MG MWF, 5 MG OTHER DAYS
     Dates: start: 20020801
  2. CELECOXIB [Suspect]
     Indication: OSTEOARTHRITIS
     Dosage: 200 MG BID
     Dates: start: 20030101
  3. DSS [Concomitant]
  4. FENTANYL [Concomitant]
  5. GABAPENTIN [Concomitant]
  6. PROMETHAZINE [Concomitant]
  7. TRAMADOL [Concomitant]
  8. ALENDRONATE SODIUM [Concomitant]
  9. OSCAL [Concomitant]

REACTIONS (2)
  - ANAEMIA [None]
  - HAEMOPTYSIS [None]
